FAERS Safety Report 6007004-6 (Version None)
Quarter: 2008Q4

REPORT INFORMATION
  Report Type: 
  Country: None (occurrence: None)
  Receive Date: 20081217
  Receipt Date: 20071217
  Transmission Date: 20090506
  Serious: No
  Sender: FDA-Public Use
  Company Number: US-ASTRAZENECA-2007UW28565

PATIENT
  Age: 64 Year
  Sex: Female
  Weight: 74.8 kg

DRUGS (5)
  1. CRESTOR [Suspect]
     Indication: BLOOD CHOLESTEROL INCREASED
     Route: 048
  2. SYNTHROID [Concomitant]
  3. VERAPAMIL [Concomitant]
  4. NEURONTIN [Concomitant]
  5. ALDACTOCIDE [Concomitant]

REACTIONS (1)
  - INFLUENZA LIKE ILLNESS [None]
